FAERS Safety Report 10245501 (Version 1)
Quarter: 2014Q2

REPORT INFORMATION
  Report Type: Spontaneous
  Country: IT (occurrence: IT)
  Receive Date: 20140618
  Receipt Date: 20140618
  Transmission Date: 20141212
  Serious: Yes (Hospitalization)
  Sender: FDA-Public Use
  Company Number: IT-ABBVIE-14P-083-1248829-00

PATIENT
  Age: 4 Year
  Sex: Male

DRUGS (2)
  1. MACLADIN [Suspect]
     Indication: COUGH
     Dosage: DAILY DOSE: 320 MG, FORM STRENGTH: 500 MG/10 ML
     Route: 048
     Dates: start: 20131118, end: 20131123
  2. TACHIPIRINA [Suspect]
     Indication: PYREXIA
     Route: 048
     Dates: start: 20131120, end: 20131120

REACTIONS (2)
  - Petechiae [Recovering/Resolving]
  - Urticaria [Recovering/Resolving]
